FAERS Safety Report 18512562 (Version 3)
Quarter: 2021Q3

REPORT INFORMATION
  Report Type: Report from Study
  Country: US (occurrence: US)
  Receive Date: 20201117
  Receipt Date: 20210813
  Transmission Date: 20211014
  Serious: No
  Sender: FDA-Public Use
  Company Number: NVSC2020US305643

PATIENT
  Age: 46 Year
  Sex: Female

DRUGS (1)
  1. MAYZENT [Suspect]
     Active Substance: SIPONIMOD
     Indication: MULTIPLE SCLEROSIS
     Dosage: 1 MG, QD (VIA MOUTH)
     Route: 048
     Dates: start: 20201112, end: 20201112

REACTIONS (4)
  - Stress [Unknown]
  - Headache [Unknown]
  - Anxiety [Unknown]
  - Nausea [Recovered/Resolved]

NARRATIVE: CASE EVENT DATE: 20201112
